FAERS Safety Report 18491687 (Version 2)
Quarter: 2020Q4

REPORT INFORMATION
  Report Type: Spontaneous
  Country: US (occurrence: US)
  Receive Date: 20201111
  Receipt Date: 20201130
  Transmission Date: 20210114
  Serious: Yes (Life-Threatening, Hospitalization)
  Sender: FDA-Public Use
  Company Number: US-TEVA-2020-US-1846455

PATIENT
  Age: 26 Year
  Sex: Female

DRUGS (7)
  1. AMLODIPINE [Suspect]
     Active Substance: AMLODIPINE BESYLATE
     Indication: INTENTIONAL OVERDOSE
     Dosage: PILLS
     Route: 065
  2. NOREPINEPHRINE. [Suspect]
     Active Substance: NOREPINEPHRINE
     Indication: HYPOTENSION
     Route: 065
  3. EPINEPHRINE. [Suspect]
     Active Substance: EPINEPHRINE
     Indication: HYPOTENSION
     Route: 065
  4. GLUCAGON. [Suspect]
     Active Substance: GLUCAGON
     Indication: INTENTIONAL OVERDOSE
     Route: 042
  5. INSULIN [Suspect]
     Active Substance: INSULIN NOS
     Indication: INTENTIONAL OVERDOSE
     Dosage: HIGH DOSE
     Route: 065
  6. METHYLENE BLUE. [Suspect]
     Active Substance: METHYLENE BLUE
     Indication: HYPOTENSION
     Dosage: 113MG (1MG/KG) OVER TWENTY MINUTES
     Route: 041
  7. CALCIUM [Suspect]
     Active Substance: CALCIUM
     Indication: INTENTIONAL OVERDOSE
     Route: 041

REACTIONS (6)
  - Hypotension [Recovering/Resolving]
  - Tachycardia [Recovering/Resolving]
  - Treatment failure [Unknown]
  - Intentional overdose [Unknown]
  - Distributive shock [Recovering/Resolving]
  - Off label use [Unknown]
